FAERS Safety Report 19574173 (Version 1)
Quarter: 2021Q3

REPORT INFORMATION
  Report Type: Spontaneous
  Country: US (occurrence: US)
  Receive Date: 20210719
  Receipt Date: 20210719
  Transmission Date: 20211014
  Serious: Yes (Hospitalization)
  Sender: FDA-Public Use
  Company Number: US-HORMOSAN PHARMA GMBH-2021-11969

PATIENT
  Age: 41 Year
  Sex: Male

DRUGS (15)
  1. MORPHINE [Interacting]
     Active Substance: MORPHINE
     Dosage: 167 MILLIGRAM,TOTAL MORPHINE DOSE IN THE FIRST 13H AFTER DISCHARGE FROM THE RECOVERY UNIT
     Route: 065
  2. HYDROMORPHONE [Interacting]
     Active Substance: HYDROMORPHONE
     Indication: PAIN MANAGEMENT
     Dosage: 0.5 MILLIGRAM
     Route: 065
  3. MORPHINE [Interacting]
     Active Substance: MORPHINE
     Dosage: 50 MILLIGRAM,BEFORE BEING TRANSFER TO THE POSTSURGICAL UNIT
     Route: 065
  4. BUPRENORPHINE. [Interacting]
     Active Substance: BUPRENORPHINE
     Indication: BACK PAIN
     Dosage: 16 MILLIGRAM, QD,IN DIVIDED DOSES
     Route: 060
  5. MORPHINE [Interacting]
     Active Substance: MORPHINE
     Dosage: 60 MILLIGRAM,THREE TIMES DAILY, BEFORE BEING DISCHARGED TO HOME
     Route: 048
  6. FENTANYL. [Interacting]
     Active Substance: FENTANYL
     Dosage: 500 MICROGRAM,BEFORE BEING TRANSFER TO THE POSTSURGICAL UNIT
     Route: 065
  7. KETOROLAC [Concomitant]
     Active Substance: KETOROLAC TROMETHAMINE
     Indication: PRODUCT USED FOR UNKNOWN INDICATION
     Dosage: 30 MILLIGRAM
     Route: 065
  8. OXYCODONE [Interacting]
     Active Substance: OXYCODONE
     Indication: PAIN MANAGEMENT
     Dosage: 20 MILLIGRAM
     Route: 048
  9. FENTANYL. [Interacting]
     Active Substance: FENTANYL
     Indication: PAIN MANAGEMENT
     Dosage: 50 MICROGRAM
     Route: 065
  10. OXYCODONE [Interacting]
     Active Substance: OXYCODONE
     Dosage: 10 MILLIGRAM,BEFORE BEING DISCHARGED TO HOME
     Route: 065
  11. HYDROMORPHONE [Interacting]
     Active Substance: HYDROMORPHONE
     Dosage: 0.5 MILLIGRAM,RECEIVED A TOTAL OF 25.8MG IV HYDROMORPHONE IN 8H
     Route: 065
  12. REMIFENTANIL [Concomitant]
     Active Substance: REMIFENTANIL
     Indication: GENERAL ANAESTHESIA
     Dosage: UNK
     Route: 065
  13. LORAZEPAM. [Concomitant]
     Active Substance: LORAZEPAM
     Indication: PRODUCT USED FOR UNKNOWN INDICATION
     Dosage: 1 MILLIGRAM
     Route: 065
  14. MORPHINE [Suspect]
     Active Substance: MORPHINE
     Indication: PAIN MANAGEMENT
     Dosage: 10 MILLIGRAM
     Route: 065
  15. CLONIDINE. [Concomitant]
     Active Substance: CLONIDINE
     Indication: PRODUCT USED FOR UNKNOWN INDICATION
     Dosage: 100 MICROGRAM
     Route: 065

REACTIONS (2)
  - Drug interaction [Unknown]
  - Inadequate analgesia [Unknown]
